FAERS Safety Report 7014712-7 (Version None)
Quarter: 2010Q3

REPORT INFORMATION
  Report Type: 
  Country: None (occurrence: None)
  Receive Date: 20100927
  Receipt Date: 20100914
  Transmission Date: 20110219
  Serious: Yes (Hospitalization)
  Sender: FDA-Public Use
  Company Number: CH-ROCHE-727233

PATIENT
  Age: 78 Year
  Sex: Female

DRUGS (13)
  1. VALIUM [Suspect]
     Route: 048
     Dates: start: 20090323, end: 20090323
  2. XANAX [Interacting]
     Route: 048
     Dates: start: 20090323, end: 20090323
  3. TEGRETOL [Interacting]
     Indication: EPILEPSY
     Route: 048
  4. AMITRIPTYLINE HCL [Interacting]
     Route: 048
  5. ALDOZONE [Interacting]
     Indication: ESSENTIAL HYPERTENSION
     Route: 048
  6. VALIUM [Concomitant]
     Dosage: FREQUENCY: 0.5 PER 1 DAY.
     Route: 048
  7. XANAX [Concomitant]
     Route: 048
  8. NEXIUM [Concomitant]
     Route: 048
  9. ASPIRIN [Concomitant]
     Route: 048
  10. SYMFONA N [Concomitant]
     Dosage: DRUG: SYMFONA.
     Route: 048
  11. FERRO SANOL [Concomitant]
     Route: 048
  12. MAGNESIOCARD [Concomitant]
     Route: 048
     Dates: end: 20100101
  13. PARAGOL [Concomitant]
     Route: 048
     Dates: end: 20100101

REACTIONS (8)
  - DRUG INTERACTION [None]
  - HYPOCHLORAEMIA [None]
  - HYPONATRAEMIA [None]
  - INTENTIONAL OVERDOSE [None]
  - SEDATION [None]
  - SPEECH DISORDER [None]
  - URINARY RETENTION [None]
  - VOMITING [None]
